FAERS Safety Report 5934039-1 (Version None)
Quarter: 2008Q4

REPORT INFORMATION
  Report Type: 
  Country: None (occurrence: None)
  Receive Date: 20081028
  Receipt Date: 20081028
  Transmission Date: 20090506
  Serious: Yes (Hospitalization)
  Sender: FDA-Public Use
  Company Number: None

PATIENT
  Age: 64 Year
  Sex: Male

DRUGS (1)
  1. CITALOPRAM HYDROBROMIDE [Suspect]
     Indication: DEPRESSION
     Dosage: 60 MG EVERY DAY PO
     Route: 048
     Dates: start: 20071213, end: 20071218

REACTIONS (3)
  - AFFECT LABILITY [None]
  - HYPERSEXUALITY [None]
  - IRRITABILITY [None]
